FAERS Safety Report 16073121 (Version 1)
Quarter: 2019Q1

REPORT INFORMATION
  Report Type: Spontaneous
  Country: US (occurrence: US)
  Receive Date: 20190314
  Receipt Date: 20190314
  Transmission Date: 20190418
  Serious: No
  Sender: FDA-Public Use
  Company Number: US-PFIZER INC-2019112226

PATIENT
  Age: 30 Year
  Sex: Female
  Weight: 67 kg

DRUGS (1)
  1. DOCETAXEL. [Suspect]
     Active Substance: DOCETAXEL
     Indication: BREAST CANCER
     Dosage: UNK, CYCLIC (EVERY OTHER WEEK)
     Dates: start: 20061002, end: 20070305

REACTIONS (3)
  - Hair colour changes [Unknown]
  - Alopecia [Unknown]
  - Hair texture abnormal [Unknown]

NARRATIVE: CASE EVENT DATE: 200709
